FAERS Safety Report 5450445-6 (Version None)
Quarter: 2007Q3

REPORT INFORMATION
  Report Type: 
  Country: None (occurrence: None)
  Receive Date: 20070803
  Receipt Date: 20070611
  Transmission Date: 20080115
  Serious: No
  Sender: FDA-Public Use
  Company Number: 200610609BWH

PATIENT
  Age: 70 Year
  Sex: Female

DRUGS (8)
  1. NEXAVAR [Suspect]
     Indication: RENAL CELL CARCINOMA STAGE UNSPECIFIED
     Dosage: SEE IMAGE
     Route: 048
     Dates: start: 20060126
  2. NEXAVAR [Suspect]
     Indication: RENAL CELL CARCINOMA STAGE UNSPECIFIED
     Dosage: SEE IMAGE
     Route: 048
     Dates: start: 20060405
  3. FLORIDEX (HERB) [Concomitant]
  4. PRILOSEC [Concomitant]
  5. MS CONTIN [Concomitant]
  6. MS SR [Concomitant]
  7. COMPAZINE [Concomitant]
  8. SENOKOT-S (DOCUSATE SODIUM, SENNA ALEXANDRINA) [Concomitant]

REACTIONS (15)
  - BLISTER [None]
  - DIARRHOEA [None]
  - EAR PRURITUS [None]
  - ERYTHEMA [None]
  - FACIAL PAIN [None]
  - FLUSHING [None]
  - HOT FLUSH [None]
  - LOCAL SWELLING [None]
  - PAIN IN EXTREMITY [None]
  - PAIN OF SKIN [None]
  - PRURITUS [None]
  - SKIN HYPERTROPHY [None]
  - SWELLING FACE [None]
  - TREMOR [None]
  - VISION BLURRED [None]
